FAERS Safety Report 4680511-4 (Version None)
Quarter: 2005Q2

REPORT INFORMATION
  Report Type: 
  Country: None (occurrence: None)
  Receive Date: 20050531
  Receipt Date: 20050204
  Transmission Date: 20051028
  Serious: No
  Sender: FDA-Public Use
  Company Number: WAES 0502USA00844

PATIENT
  Age: 63 Year
  Sex: Female

DRUGS (1)
  1. ZETIA [Suspect]
     Dosage: 10 MG/DAILY/PO; 10 MG/QOD/PO
     Route: 048

REACTIONS (3)
  - ABDOMINAL PAIN [None]
  - HAEMATOCHEZIA [None]
  - MEDICATION ERROR [None]
